FAERS Safety Report 9040394 (Version 1)
Quarter: 2013Q1

REPORT INFORMATION
  Report Type: Report from Study
  Country: US (occurrence: US)
  Receive Date: 20130129
  Receipt Date: 20130129
  Transmission Date: 20140127
  Serious: No
  Sender: FDA-Public Use
  Company Number: US-ABBOTT-12P-163-0889278-00

PATIENT
  Age: 27 Year
  Sex: Female

DRUGS (3)
  1. HUMIRA 40 MG/0.8 ML PEN [Suspect]
     Indication: COLITIS ULCERATIVE
     Dosage: 80MG ON 15 DEC 2011
     Dates: start: 20111201
  2. AVACOL [Concomitant]
     Indication: COLITIS ULCERATIVE
     Dosage: DAILY
  3. ADVAIR [Concomitant]
     Indication: ASTHMA
     Dosage: 250

REACTIONS (4)
  - Ear infection [Recovered/Resolved]
  - Influenza [Recovered/Resolved]
  - Arthralgia [Recovered/Resolved]
  - Cough [Recovered/Resolved]
